FAERS Safety Report 4653966-9 (Version None)
Quarter: 2005Q2

REPORT INFORMATION
  Report Type: 
  Country: None (occurrence: None)
  Receive Date: 20050404
  Receipt Date: 20041201
  Transmission Date: 20051028
  Serious: No
  Sender: FDA-Public Use
  Company Number: USA041285034

PATIENT
  Age: 47 Year
  Sex: Male
  Weight: 132 kg

DRUGS (4)
  1. CYMBALTA [Suspect]
     Dosage: 60 MG DAY
     Dates: start: 20041130, end: 20041201
  2. HUMALOG [Concomitant]
  3. ZOCOR (SIMVASTATIN RATIOPHARM) [Concomitant]
  4. BLOOD PRESSURE PILL [Concomitant]

REACTIONS (9)
  - COGNITIVE DISORDER [None]
  - DISORIENTATION [None]
  - DYSARTHRIA [None]
  - INCOHERENT [None]
  - LETHARGY [None]
  - PAIN [None]
  - PARAESTHESIA [None]
  - PERIPHERAL COLDNESS [None]
  - THINKING ABNORMAL [None]
